FAERS Safety Report 23023836 (Version 1)
Quarter: 2023Q4

REPORT INFORMATION
  Report Type: Spontaneous
  Country: GB (occurrence: GB)
  Receive Date: 20231003
  Receipt Date: 20231003
  Transmission Date: 20240109
  Serious: Yes (Other)
  Sender: FDA-Public Use
  Company Number: GB-PERRIGO-23GB011219

PATIENT
  Sex: Male

DRUGS (1)
  1. OXYCODONE HYDROCHLORIDE\OXYCODONE TEREPHTHALATE [Suspect]
     Active Substance: OXYCODONE HYDROCHLORIDE\OXYCODONE TEREPHTHALATE
     Indication: Product used for unknown indication
     Dosage: UNK, QD
     Route: 065

REACTIONS (2)
  - Drug dependence [Unknown]
  - Incorrect product administration duration [Unknown]
